FAERS Safety Report 19134757 (Version 10)
Quarter: 2021Q4

REPORT INFORMATION
  Report Type: Report from Study
  Country: GB (occurrence: GB)
  Receive Date: 20210414
  Receipt Date: 20211108
  Transmission Date: 20220304
  Serious: Yes (Hospitalization, Other)
  Sender: FDA-Public Use
  Company Number: GB-ROCHE-2081607

PATIENT
  Age: 51 Year
  Sex: Female

DRUGS (128)
  1. TRASTUZUMAB [Suspect]
     Active Substance: TRASTUZUMAB
     Indication: Breast cancer metastatic
     Dosage: 600 MG, Q3W(DF: 230; CUMULATIVE DOSE: 4544.048 MG)/START:24-SEP-2015
     Route: 042
     Dates: end: 20150924
  2. TRASTUZUMAB [Suspect]
     Active Substance: TRASTUZUMAB
     Indication: HER2 positive breast cancer
     Dosage: 450 MILLIGRAM, Q3W / START DATE: 16-OCT-2015
     Route: 042
  3. TRASTUZUMAB [Suspect]
     Active Substance: TRASTUZUMAB
     Dosage: 600 MILLIGRAM, QD/ START DATE:24-SEP-2015
     Route: 042
     Dates: end: 20150924
  4. TRASTUZUMAB [Suspect]
     Active Substance: TRASTUZUMAB
     Dosage: 260 MILLIGRAM, Q3W, TARGETED THERAPY/START: 24-SEP-2015
     Route: 042
     Dates: end: 20150924
  5. TRASTUZUMAB [Suspect]
     Active Substance: TRASTUZUMAB
     Dosage: 450 MILLIGRAM, Q3W(DF:230; CUMULATIVE DOSE: 2936.6072 MG)/START:16-OCT-2015
     Route: 042
  6. TRASTUZUMAB [Suspect]
     Active Substance: TRASTUZUMAB
     Dosage: 600 MILLIGRAM, Q3W (DOSE FORM: 120)/START DATE: 24-SEP-2015
     Route: 042
     Dates: end: 20150924
  7. TRASTUZUMAB [Suspect]
     Active Substance: TRASTUZUMAB
     Dosage: 600 MILLIGRAM/ START DATE: 24-SEP-2015
     Route: 042
     Dates: end: 20150924
  8. TRASTUZUMAB [Suspect]
     Active Substance: TRASTUZUMAB
     Dosage: 260 MG, Q2WEEKS/ START DATE:24-SEP-2015
     Route: 042
     Dates: end: 20150924
  9. TRASTUZUMAB [Suspect]
     Active Substance: TRASTUZUMAB
     Dosage: 260 MILLIGRAM, Q3W (DOSE FORM: 120)/START: 24-SEP-2015
     Route: 042
     Dates: end: 20150924
  10. TRASTUZUMAB [Suspect]
     Active Substance: TRASTUZUMAB
     Dosage: 450 MG, Q2W (DF: 230; CUMULATIVE DOSE TO FIRST REACTION: 4404.9106 MG)/START:16-OCT-2015
     Route: 042
  11. CAPECITABINE [Suspect]
     Active Substance: CAPECITABINE
     Indication: Breast cancer metastatic
     Dosage: 3500 MILLIGRAM (DOSE FORM: 82)/START DATE: 05-SEP-2017
     Route: 048
     Dates: end: 20171128
  12. CAPECITABINE [Suspect]
     Active Substance: CAPECITABINE
     Dosage: 1500 MILLIGRAM (DOSE FORM: 82)/START:28-NOV-2017
     Route: 048
     Dates: end: 20171219
  13. CAPECITABINE [Suspect]
     Active Substance: CAPECITABINE
     Dosage: 1000 MILLIGRAM / START DATE: 28-NOV-2017
     Route: 048
     Dates: end: 20171219
  14. CAPECITABINE [Suspect]
     Active Substance: CAPECITABINE
     Dosage: 3500 MILLIGRAM/ START DATE: 05-SEP-2017
     Route: 048
     Dates: end: 20171219
  15. CAPECITABINE [Suspect]
     Active Substance: CAPECITABINE
     Dosage: 1500 MG (1500 MG AND 1000 MG)/ START DATE:28-NOV-2017
     Route: 048
  16. CAPECITABINE [Suspect]
     Active Substance: CAPECITABINE
     Dosage: 3500 MILLIGRAM/ START DATE:05-SEP-2017
     Route: 048
  17. CAPECITABINE [Suspect]
     Active Substance: CAPECITABINE
     Dosage: 1500 MILLIGRAM (DOSE FORM: 245)/28-NOV-2017
     Route: 048
     Dates: end: 20171219
  18. CAPECITABINE [Suspect]
     Active Substance: CAPECITABINE
     Dosage: 3500 MG, TABLET/ START DATE: 05-SEP-2017
     Route: 048
     Dates: end: 20171128
  19. CAPECITABINE [Suspect]
     Active Substance: CAPECITABINE
     Dosage: 1000 MILLIGRAM/ START DATE: 28-NOV-2017
     Route: 048
     Dates: end: 20171219
  20. DOCETAXEL [Suspect]
     Active Substance: DOCETAXEL
     Indication: Breast cancer metastatic
     Dosage: 132 MILLIGRAM, Q3W (CUMULATIVE DOSE TO FIRST REACTION: 993.4048 MG)/25-SEP-2015
     Route: 042
     Dates: end: 20151016
  21. DOCETAXEL [Suspect]
     Active Substance: DOCETAXEL
     Indication: HER2 positive breast cancer
     Dosage: 108 MILLIGRAM, Q3W/ START:16-OCT-2015
     Route: 042
     Dates: end: 20160108
  22. DOCETAXEL [Suspect]
     Active Substance: DOCETAXEL
     Dosage: 108 MG EVERY 3 WEEKS/ 16-OCT-2015
     Route: 042
  23. DOCETAXEL [Suspect]
     Active Substance: DOCETAXEL
     Dosage: 108 MILLIGRAM, Q3W/16-OCT-2015
     Route: 042
     Dates: end: 20160108
  24. DOCETAXEL [Suspect]
     Active Substance: DOCETAXEL
     Dosage: 108 MILLIGRAM/ START DATE: 16-OCT-2015
     Route: 042
  25. PERTUZUMAB [Suspect]
     Active Substance: PERTUZUMAB
     Indication: HER2 positive breast cancer
     Dosage: 840 MILLIGRAM, Q3W/ START:25-SEP-2015
     Route: 042
     Dates: end: 20150925
  26. PERTUZUMAB [Suspect]
     Active Substance: PERTUZUMAB
     Indication: Breast cancer metastatic
     Dosage: 840 MILLIGRAM, Q3W (DOSE FORM: 120)/STAR:24-SEP-2015
     Route: 042
     Dates: end: 20150924
  27. PERTUZUMAB [Suspect]
     Active Substance: PERTUZUMAB
     Dosage: 420 MG,EVERY 3 WEEKS (DOSE FORM: 230)/16-OCT-2015
     Route: 042
     Dates: end: 20170324
  28. PERTUZUMAB [Suspect]
     Active Substance: PERTUZUMAB
     Dosage: 840 MG EVERY 3 WEEKS/24-SEP-2015
     Route: 042
     Dates: end: 20150924
  29. PERTUZUMAB [Suspect]
     Active Substance: PERTUZUMAB
     Dosage: 420 MG, EVERY 3 WEEKS (DOSE FORM: 230)
     Route: 042
     Dates: end: 20170324
  30. PERTUZUMAB [Suspect]
     Active Substance: PERTUZUMAB
     Dosage: 420 MILLIGRAM, Q3W/16-OCT-2015
     Route: 042
  31. PERTUZUMAB [Suspect]
     Active Substance: PERTUZUMAB
     Dosage: 840 DOSAGE FORM, TIW/24-SEP-2015
     Route: 042
     Dates: end: 20150924
  32. PERTUZUMAB [Suspect]
     Active Substance: PERTUZUMAB
     Dosage: 840 MG, QD (1/DAY) (DOSE FORM: 230)/24-SEP-2015
     Route: 042
     Dates: end: 20150924
  33. PERTUZUMAB [Suspect]
     Active Substance: PERTUZUMAB
     Dosage: 420 MILLIGRAM, 3XW/ 24-MAR-2017
     Route: 042
  34. PERTUZUMAB [Suspect]
     Active Substance: PERTUZUMAB
     Dosage: 840 MG/M2, EVERY 3 WEEKS/24-SEP-2015
     Route: 042
     Dates: end: 20150924
  35. PERTUZUMAB [Suspect]
     Active Substance: PERTUZUMAB
     Dosage: 420 MG, TIW/16-OCT-2015
     Route: 042
     Dates: end: 20170324
  36. PERTUZUMAB [Suspect]
     Active Substance: PERTUZUMAB
     Dosage: 420 MG, EVERY 3 WEEKS/24-MAR-2017
     Route: 042
  37. PERTUZUMAB [Suspect]
     Active Substance: PERTUZUMAB
     Dosage: 840 MG EVERY 3 WEEKS/24-SEP-2015
     Route: 042
     Dates: end: 20150924
  38. PERTUZUMAB [Suspect]
     Active Substance: PERTUZUMAB
     Dosage: 420 MILLIGRAM, Q3W/16-OCT-2015
     Route: 042
     Dates: end: 20170324
  39. PERTUZUMAB [Suspect]
     Active Substance: PERTUZUMAB
     Dosage: 420 MG, Q3W/24-MAR-2017
     Route: 042
     Dates: end: 20170324
  40. PERTUZUMAB [Suspect]
     Active Substance: PERTUZUMAB
     Dosage: 420 MG, Q3W/16-OCT-2015
     Route: 042
     Dates: end: 20170324
  41. PERTUZUMAB [Suspect]
     Active Substance: PERTUZUMAB
     Dosage: 840 MILLIGRAM, Q3W/24-SEP-2015
     Route: 042
     Dates: end: 20150924
  42. ADO-TRASTUZUMAB EMTANSINE [Suspect]
     Active Substance: ADO-TRASTUZUMAB EMTANSINE
     Indication: HER2 positive breast cancer
     Dosage: 260 MG, Q3W (EVERY 3 WEEKS) (TARGETED THERAPY)/24-SEP-2015
     Route: 042
     Dates: end: 20150924
  43. ADO-TRASTUZUMAB EMTANSINE [Suspect]
     Active Substance: ADO-TRASTUZUMAB EMTANSINE
     Indication: Breast cancer metastatic
     Dosage: 840 MILLIGRAM, Q3W (Q3W)/24-SEP-2015
     Route: 042
     Dates: end: 20150924
  44. ADO-TRASTUZUMAB EMTANSINE [Suspect]
     Active Substance: ADO-TRASTUZUMAB EMTANSINE
     Dosage: 450 MG, EVERY 3 WEEKS/16-OCT-2015
     Route: 042
  45. ADO-TRASTUZUMAB EMTANSINE [Suspect]
     Active Substance: ADO-TRASTUZUMAB EMTANSINE
     Dosage: UNK
  46. ADO-TRASTUZUMAB EMTANSINE [Suspect]
     Active Substance: ADO-TRASTUZUMAB EMTANSINE
     Dosage: 600 MILLIGRAM, Q3W
     Route: 042
  47. ADO-TRASTUZUMAB EMTANSINE [Suspect]
     Active Substance: ADO-TRASTUZUMAB EMTANSINE
     Dosage: 780 MILLIGRAM, Q3W/24-SEP-2015
     Route: 042
     Dates: end: 20150924
  48. ADO-TRASTUZUMAB EMTANSINE [Suspect]
     Active Substance: ADO-TRASTUZUMAB EMTANSINE
     Dosage: 260 MG, EVERY 3 WEEKS/24-SEP-2015
     Route: 042
     Dates: end: 20150924
  49. ADO-TRASTUZUMAB EMTANSINE [Suspect]
     Active Substance: ADO-TRASTUZUMAB EMTANSINE
     Dosage: 260 MG, 3/WEEK (CV)24-SEP-2015
     Route: 042
     Dates: end: 20150924
  50. ADO-TRASTUZUMAB EMTANSINE [Suspect]
     Active Substance: ADO-TRASTUZUMAB EMTANSINE
     Dosage: 450 MG, EVERY 3 WEEKS/16-OCT-2015
     Route: 042
  51. ADO-TRASTUZUMAB EMTANSINE [Suspect]
     Active Substance: ADO-TRASTUZUMAB EMTANSINE
     Dosage: 450 MG, Q3W (16-OCT-2015
     Route: 042
  52. ATEZOLIZUMAB [Suspect]
     Active Substance: ATEZOLIZUMAB
     Indication: HER2 positive breast cancer
     Dosage: 1200 MILLIGRAM, Q3W/10-MAY-2017
     Route: 042
     Dates: end: 20170628
  53. ATEZOLIZUMAB [Suspect]
     Active Substance: ATEZOLIZUMAB
     Indication: Breast cancer metastatic
     Dosage: DRUG CUMULATIVE DOSAGE NUMBER 3600 MG
     Route: 042
  54. ATEZOLIZUMAB [Suspect]
     Active Substance: ATEZOLIZUMAB
     Dosage: 3600 MILLIGRAM, QD/10-MAY-2017
     Route: 042
     Dates: end: 20170628
  55. ATEZOLIZUMAB [Suspect]
     Active Substance: ATEZOLIZUMAB
     Dosage: UNK
     Route: 065
  56. ATEZOLIZUMAB [Suspect]
     Active Substance: ATEZOLIZUMAB
     Dosage: DOSE FORM: 120
  57. ATEZOLIZUMAB [Suspect]
     Active Substance: ATEZOLIZUMAB
     Dosage: 1200 MILLIGRAM, TID/10-MAY-2017
     Route: 042
     Dates: end: 20170628
  58. ATEZOLIZUMAB [Suspect]
     Active Substance: ATEZOLIZUMAB
     Dosage: 1200 MG, 3/WEEK (CV)/10-MAY-2017
     Route: 042
     Dates: end: 20170628
  59. CARBOPLATIN [Suspect]
     Active Substance: CARBOPLATIN
     Indication: Breast cancer metastatic
     Dosage: 240 MG, WEEKLY (EVERY 7 DAYS)/19-DEC-2018
     Route: 042
     Dates: end: 20190117
  60. CARBOPLATIN [Suspect]
     Active Substance: CARBOPLATIN
     Indication: HER2 positive breast cancer
     Dosage: UNK
  61. CARBOPLATIN [Suspect]
     Active Substance: CARBOPLATIN
     Dosage: 240 MG, WEEKLY/19-DEC-2018
     Route: 042
     Dates: end: 20190117
  62. ERIBULIN [Suspect]
     Active Substance: ERIBULIN
     Indication: Breast cancer metastatic
     Dosage: 2.5 MG, UNKNOWN /22-AUG-2018
     Route: 042
     Dates: end: 20181010
  63. ERIBULIN [Suspect]
     Active Substance: ERIBULIN
     Indication: HER2 positive breast cancer
     Dosage: UNK (DOSE FORM: 120)
     Route: 065
  64. NERATINIB [Suspect]
     Active Substance: NERATINIB
     Indication: Breast cancer metastatic
     Dosage: 240 MG, QD (1/DAY)/20-FEB-2018
     Route: 048
     Dates: end: 20180717
  65. NERATINIB [Suspect]
     Active Substance: NERATINIB
     Indication: HER2 positive breast cancer
     Dosage: UNK
  66. NERATINIB [Suspect]
     Active Substance: NERATINIB
     Dosage: 240 MG, QD (1/DAY)/20-FEB-2018
     Route: 048
     Dates: end: 20180717
  67. LOPERAMIDE [Concomitant]
     Active Substance: LOPERAMIDE
     Indication: Product used for unknown indication
     Dosage: 2 MILLIGRAM/ START DATE: 22-SEP-2015
     Route: 048
     Dates: end: 20160122
  68. AMOXICILLIN [Concomitant]
     Active Substance: AMOXICILLIN
     Indication: Upper respiratory tract infection
     Dosage: 1500 MILLIGRAM, QD (500 MG, 0.33 DAY)
     Route: 048
     Dates: end: 20160406
  69. AMOXICILLIN [Concomitant]
     Active Substance: AMOXICILLIN
     Dosage: 1500 MILLIGRAM, QD (500 MG, 0.33 DAY)
     Route: 048
  70. AMOXICILLIN [Concomitant]
     Active Substance: AMOXICILLIN
     Dosage: 500 MG, TID (DOSE FORM: 245)
     Route: 048
  71. AMOXICILLIN [Concomitant]
     Active Substance: AMOXICILLIN
     Dosage: 500 MILLIGRAM, QD
     Route: 048
     Dates: end: 20160406
  72. AMOXICILLIN [Concomitant]
     Active Substance: AMOXICILLIN
     Dosage: 1500 MG, QD (DOSE FORM: 245)
     Route: 048
     Dates: end: 20160406
  73. AMOXICILLIN [Concomitant]
     Active Substance: AMOXICILLIN
     Dosage: 1500 MILLIGRAM
     Route: 048
  74. AMOXICILLIN [Concomitant]
     Active Substance: AMOXICILLIN
     Dosage: 1500 MG (DOSE FORM: 245; CUMULATIVE DOSE: 43437.5 MG)
     Route: 048
     Dates: end: 20160406
  75. AMOXICILLIN [Concomitant]
     Active Substance: AMOXICILLIN
     Dosage: 1500 MILLIGRAM
     Route: 048
  76. CITALOPRAM [Concomitant]
     Active Substance: CITALOPRAM HYDROBROMIDE
     Indication: Product used for unknown indication
     Dosage: 20 MILLIGRAM, QD
     Route: 048
  77. CITALOPRAM [Concomitant]
     Active Substance: CITALOPRAM HYDROBROMIDE
     Dosage: 20 MG, QD (1/DAY)
     Route: 048
  78. CITALOPRAM [Concomitant]
     Active Substance: CITALOPRAM HYDROBROMIDE
     Dosage: 20 MILLIGRAM, QD
     Route: 048
  79. CITALOPRAM [Concomitant]
     Active Substance: CITALOPRAM HYDROBROMIDE
     Dosage: 30 MILLIGRAM, QD, 10 MILLIGRAM, TID/AUG-2016
     Route: 048
  80. AMITRIPTYLINE [Concomitant]
     Active Substance: AMITRIPTYLINE
     Indication: Neuropathy peripheral
     Dosage: 30 MG, EVERY 1 DAYS/AUG-2016
     Route: 048
  81. AMITRIPTYLINE [Concomitant]
     Active Substance: AMITRIPTYLINE
     Dosage: 10 MG, TID (3/DAY) (0.33 DAY)/AUG-2016
     Route: 048
  82. AMITRIPTYLINE [Concomitant]
     Active Substance: AMITRIPTYLINE
     Dosage: 10 MG EVERY 0.33 DAY/AUG-2016
     Route: 048
  83. HUMALOG [Concomitant]
     Active Substance: INSULIN LISPRO
     Indication: Product used for unknown indication
     Dosage: 3 DF, QD (16 UNIT)
     Route: 058
  84. HUMALOG [Concomitant]
     Active Substance: INSULIN LISPRO
     Dosage: 0.33 DAY, (16 UNIT)
     Route: 058
  85. HUMALOG [Concomitant]
     Active Substance: INSULIN LISPRO
     Dosage: 16 DOSAGE FORM, TID
     Route: 058
  86. HUMALOG [Concomitant]
     Active Substance: INSULIN LISPRO
     Dosage: 16 INTERNATIONAL UNIT, 0.33 DAY
     Route: 058
  87. HUMALOG [Concomitant]
     Active Substance: INSULIN LISPRO
     Dosage: 16 DF, QD (1/DAY)
     Route: 058
  88. HUMALOG [Concomitant]
     Active Substance: INSULIN LISPRO
     Dosage: 3 OT, QD (16 UNIT)
     Route: 058
  89. HUMALOG [Concomitant]
     Active Substance: INSULIN LISPRO
     Dosage: 16 DF EVERY 0.33 DAY
     Route: 058
  90. HUMALOG [Concomitant]
     Active Substance: INSULIN LISPRO
     Dosage: 48 INTERNATIONAL UNIT, QD
     Route: 058
  91. HUMALOG [Concomitant]
     Active Substance: INSULIN LISPRO
     Dosage: 16 DF EVERY 0.33 DAY
     Route: 058
  92. HUMALOG [Concomitant]
     Active Substance: INSULIN LISPRO
     Dosage: 16 INTERNATIONAL UNIT, TID
     Route: 058
  93. LEVEMIR [Concomitant]
     Active Substance: INSULIN DETEMIR
     Indication: Product used for unknown indication
     Dosage: 30 MILLIGRAM, QD (DOSE FORM: 245)
     Route: 058
  94. LEVEMIR [Concomitant]
     Active Substance: INSULIN DETEMIR
     Dosage: (38 UNIT)38 DF, QD (1/DAY)1 DF, QD (38 UNIT)
     Route: 058
  95. LEVEMIR [Concomitant]
     Active Substance: INSULIN DETEMIR
     Dosage: UNK, QD
     Route: 058
  96. ZOPICLONE [Concomitant]
     Active Substance: ZOPICLONE
     Indication: Insomnia
     Dosage: 3.75 MILLIGRAM, QD/ START DATE:12-AUG-2017
     Route: 048
     Dates: end: 20170822
  97. ZOPICLONE [Concomitant]
     Active Substance: ZOPICLONE
     Dosage: UNK
  98. ZOPICLONE [Concomitant]
     Active Substance: ZOPICLONE
     Dosage: 3.75 MILLIGRAM, QD/12-AUG-2017
     Route: 048
     Dates: end: 20170822
  99. METFORMIN [Concomitant]
     Active Substance: METFORMIN HYDROCHLORIDE
     Indication: Product used for unknown indication
     Dosage: 1000 MG, EVERY 1 DAY (DOSE FORM: 245)
     Route: 048
  100. METFORMIN [Concomitant]
     Active Substance: METFORMIN HYDROCHLORIDE
     Dosage: 500 MILLIGRAM, QD
     Route: 048
  101. METFORMIN [Concomitant]
     Active Substance: METFORMIN HYDROCHLORIDE
     Dosage: 500 MG, BID (2/DAY)
     Route: 048
  102. METFORMIN [Concomitant]
     Active Substance: METFORMIN HYDROCHLORIDE
     Dosage: 500 MILLIGRAM
     Route: 048
  103. METFORMIN [Concomitant]
     Active Substance: METFORMIN HYDROCHLORIDE
     Dosage: 500 MG (0.5/DAY)
     Route: 048
  104. METFORMIN [Concomitant]
     Active Substance: METFORMIN HYDROCHLORIDE
     Dosage: 500 MILLIGRAM, BID (DOSE FORM: 245)
     Route: 048
  105. METFORMIN [Concomitant]
     Active Substance: METFORMIN HYDROCHLORIDE
     Dosage: 500 MILLIGRAM
     Route: 048
  106. LANSOPRAZOLE [Concomitant]
     Active Substance: LANSOPRAZOLE
     Indication: Product used for unknown indication
     Dosage: 30 MILLIGRAM, QD (DOSE FORM: 245)
     Route: 048
  107. LANSOPRAZOLE [Concomitant]
     Active Substance: LANSOPRAZOLE
     Dosage: 30 MG, QD (1/DAY)
     Route: 048
  108. LANSOPRAZOLE [Concomitant]
     Active Substance: LANSOPRAZOLE
     Dosage: 30 MILLIGRAM, QD
     Route: 048
  109. BUDESONIDE [Concomitant]
     Active Substance: BUDESONIDE
     Indication: Product used for unknown indication
     Dosage: 9 MILLIGRAM, QD/ START DATE: 20-FEB-2018
     Route: 048
  110. BUDESONIDE [Concomitant]
     Active Substance: BUDESONIDE
     Dosage: 9 MILLIGRAM, QD (DOSE FORM: 5)/20-FEB-2018
     Route: 048
  111. DOCUSATE SODIUM [Concomitant]
     Active Substance: DOCUSATE SODIUM
     Dosage: UNK
  112. DOCUSATE SODIUM [Concomitant]
     Active Substance: DOCUSATE SODIUM
     Dosage: UNK
  113. DOMPERIDONE [Concomitant]
     Active Substance: DOMPERIDONE
     Dosage: UNK
  114. GLYCERIN [Concomitant]
     Active Substance: GLYCERIN
     Indication: Product used for unknown indication
     Dosage: 4 GRAM/ START DATE: 11-MAY-2018
     Route: 048
     Dates: end: 201805
  115. GLYCERIN [Concomitant]
     Active Substance: GLYCERIN
     Dosage: 4 GRAM / STAR DATE: 11-MAY-2018
     Route: 048
  116. HALOPERIDOL [Concomitant]
     Active Substance: HALOPERIDOL
     Dosage: UNK
  117. BUTYLSCOPOLAMINE [Concomitant]
     Active Substance: BUTYLSCOPOLAMINE
     Indication: Product used for unknown indication
     Dosage: 20 MILLIGRAM, QD/ 19-DEC-2017
     Route: 048
     Dates: end: 2018
  118. BUTYLSCOPOLAMINE [Concomitant]
     Active Substance: BUTYLSCOPOLAMINE
     Dosage: 60 MILLIGRAM, QD/19-DEC-2017
     Route: 048
     Dates: end: 2018
  119. BUTYLSCOPOLAMINE [Concomitant]
     Active Substance: BUTYLSCOPOLAMINE
     Dosage: 20 MILLIGRAM, TID/19-DEC-2017
     Route: 048
     Dates: end: 2018
  120. BUTYLSCOPOLAMINE [Concomitant]
     Active Substance: BUTYLSCOPOLAMINE
     Dosage: 20 MILLIGRAM, TID (DOSE FORM: 245)/19-DEC-2017
     Route: 048
     Dates: end: 2018
  121. BUTYLSCOPOLAMINE [Concomitant]
     Active Substance: BUTYLSCOPOLAMINE
     Dosage: 20 MG PER 0.33 DAY/19-DEC-2017
     Route: 048
     Dates: end: 2018
  122. LACTULOSE [Concomitant]
     Active Substance: LACTULOSE
     Indication: Product used for unknown indication
     Dosage: UNK
  123. POLYETHYLENE GLYCOLS [Concomitant]
     Active Substance: POLYETHYLENE GLYCOLS
     Dosage: UNK
  124. OMEPRAZOLE [Concomitant]
     Active Substance: OMEPRAZOLE
     Dosage: UNK
  125. ONDANSETRON [Concomitant]
     Active Substance: ONDANSETRON
     Dosage: UNK
  126. RANITIDINE [Concomitant]
     Active Substance: RANITIDINE
     Dosage: UNK
  127. SENNOSIDE B [Concomitant]
     Active Substance: SENNOSIDE B
     Dosage: UNK
  128. SCOPOLAMINE [Concomitant]
     Active Substance: SCOPOLAMINE
     Indication: Product used for unknown indication
     Dosage: 20 MILLIGRAM/  START DATE: 19-DEC-2017

REACTIONS (8)
  - Constipation [Recovered/Resolved]
  - Neuropathy peripheral [Recovered/Resolved]
  - Aphonia [Recovered/Resolved]
  - Upper respiratory tract infection [Recovered/Resolved]
  - Hyperglycaemia [Recovered/Resolved]
  - Hot flush [Recovered/Resolved]
  - Cough [Recovered/Resolved]
  - Off label use [Unknown]

NARRATIVE: CASE EVENT DATE: 20160301
